FAERS Safety Report 18013967 (Version 1)
Quarter: 2020Q3

REPORT INFORMATION
  Report Type: Spontaneous
  Country: NL (occurrence: NL)
  Receive Date: 20200713
  Receipt Date: 20200713
  Transmission Date: 20201103
  Serious: Yes (Other)
  Sender: FDA-Public Use
  Company Number: NL-GLAXOSMITHKLINE-NL2020GSK124954

PATIENT
  Age: 23 Year
  Sex: Male
  Weight: 72 kg

DRUGS (3)
  1. LAMICTAL [Suspect]
     Active Substance: LAMOTRIGINE
     Indication: EPILEPSY
     Dosage: 300 MG, QD
     Route: 065
     Dates: start: 20050427
  2. TEGRETOL [Interacting]
     Active Substance: CARBAMAZEPINE
     Indication: EPILEPSY
     Dosage: 800 MG, QD
     Route: 065
     Dates: start: 20050427
  3. GINKGO BILOBA [Interacting]
     Active Substance: GINKGO
     Indication: LISTLESS
     Dosage: 150 MG, QD
     Route: 065
     Dates: start: 20100627, end: 20100705

REACTIONS (2)
  - Drug interaction [Recovered/Resolved]
  - Epilepsy [Recovered/Resolved]

NARRATIVE: CASE EVENT DATE: 20100702
